FAERS Safety Report 22154715 (Version 1)
Quarter: 2023Q1

REPORT INFORMATION
  Report Type: Report from Study
  Country: ES (occurrence: ES)
  Receive Date: 20230330
  Receipt Date: 20230330
  Transmission Date: 20230418
  Serious: Yes (Congenital Anomaly)
  Sender: FDA-Public Use
  Company Number: ES-UCBSA-2023015653

PATIENT

DRUGS (2)
  1. LEVETIRACETAM [Suspect]
     Active Substance: LEVETIRACETAM
     Indication: Epilepsy
     Dosage: 1000 MILLIGRAM
  2. CARBAMAZEPINE [Suspect]
     Active Substance: CARBAMAZEPINE
     Indication: Epilepsy
     Dosage: 400 MILLIGRAM

REACTIONS (2)
  - Congenital anomaly [Unknown]
  - Maternal exposure during pregnancy [Unknown]
